FAERS Safety Report 7889394-2 (Version None)
Quarter: 2011Q4

REPORT INFORMATION
  Report Type: 
  Country: None (occurrence: None)
  Receive Date: 20111103
  Receipt Date: 20111101
  Transmission Date: 20120403
  Serious: Yes (Hospitalization)
  Sender: FDA-Public Use
  Company Number: US-BAYER-2011-106096

PATIENT
  Age: 55 Year
  Sex: Male

DRUGS (1)
  1. ASPIRIN [Suspect]

REACTIONS (1)
  - RECTAL HAEMORRHAGE [None]
